FAERS Safety Report 7085904-6 (Version None)
Quarter: 2010Q4

REPORT INFORMATION
  Report Type: 
  Country: None (occurrence: None)
  Receive Date: 20101007
  Receipt Date: 20100825
  Transmission Date: 20110411
  Serious: No
  Sender: FDA-Public Use
  Company Number: 2010IP000106

PATIENT
  Age: 69 Year
  Sex: Female

DRUGS (9)
  1. BEPREVE [Suspect]
     Indication: SEASONAL ALLERGY
     Dosage: 1 GTT; BID; OPH
     Route: 047
     Dates: start: 20100824, end: 20100826
  2. LIBRAX [Concomitant]
  3. PROTONIX [Concomitant]
  4. PEPCID [Concomitant]
  5. MIRALAX [Concomitant]
  6. METOPROLOL [Concomitant]
  7. PLAVIX [Concomitant]
  8. ASPIRIN LOW [Concomitant]
  9. OTC GAS PILL (UNSPECIFIED) [Concomitant]

REACTIONS (3)
  - ABDOMINAL PAIN UPPER [None]
  - DIARRHOEA [None]
  - HEART RATE INCREASED [None]
